FAERS Safety Report 25442032 (Version 3)
Quarter: 2025Q3

REPORT INFORMATION
  Report Type: Spontaneous
  Country: US (occurrence: US)
  Receive Date: 20250616
  Receipt Date: 20250905
  Transmission Date: 20251020
  Serious: Yes (Death, Hospitalization, Other)
  Sender: REGENERON
  Company Number: US-REGENERON PHARMACEUTICALS, INC.-2025-095875

PATIENT
  Sex: Female

DRUGS (20)
  1. LIBTAYO [Suspect]
     Active Substance: CEMIPLIMAB-RWLC
     Indication: Squamous cell carcinoma of skin
     Dosage: 350 MG, EVERY 21 DAYS (Q3W)
     Route: 042
     Dates: start: 20250411, end: 20250411
  2. ALPRAZOLAM [Concomitant]
     Active Substance: ALPRAZOLAM
     Indication: Anxiety
     Dosage: 0.25 MG TABLET, TAKE 1 TABLET BY MOUTH AS NEEDED
     Route: 048
  3. ASCORBIC ACID [Concomitant]
     Active Substance: ASCORBIC ACID
     Indication: Product used for unknown indication
     Dosage: 500 MG ORAL TABLET, TAKE 1 TABLET BY MOUTH IN THE MORNING
     Route: 048
  4. ASPIRIN [Concomitant]
     Active Substance: ASPIRIN
     Indication: Product used for unknown indication
     Dosage: 81 MG EC TABLET, TAKE 1 TABLET BY MOUTH IN THE MORNING
     Route: 048
  5. BIOTIN [Concomitant]
     Active Substance: BIOTIN
     Indication: Product used for unknown indication
     Dosage: 10000 MCG ORAL TABLET, TAKE 1 TABLET BY MOUTH IN THE MORNING
     Route: 048
  6. CALCIUM\CHOLECALCIFEROL [Concomitant]
     Active Substance: CALCIUM\CHOLECALCIFEROL
     Indication: Product used for unknown indication
     Dosage: 250 MG-3.125 MCG TABS PER TABLET, TAKE 1 TABLET BY MOUTH IN THE MORNING
     Route: 048
  7. CLOPIDOGREL [Concomitant]
     Active Substance: CLOPIDOGREL BISULFATE
     Indication: Product used for unknown indication
     Dosage: 75 MG TABLET, TAKE 1 TABLET BY MOUTH IN THE MORNING
     Route: 048
  8. GABAPENTIN [Concomitant]
     Active Substance: GABAPENTIN
     Indication: Product used for unknown indication
     Dosage: 100 MG CAPSULE, TAKE 1 CAPSULE BY MOUTH DAILY AT BEDTIME
     Route: 048
  9. LEVOTHYROXINE [Concomitant]
     Active Substance: LEVOTHYROXINE
     Indication: Product used for unknown indication
     Dosage: 88 MCG TABLET, TAKE 1 TABLET BY MOUTH DAILY BEFORE BREAKFAST
     Route: 048
  10. METOPROLOL SUCCINATE [Concomitant]
     Active Substance: METOPROLOL SUCCINATE
     Indication: Product used for unknown indication
     Dosage: 25 MG TABLET, TAKE 1 TABLET BY MOUTH IN THE MORNING
     Route: 048
  11. MYRBETRIQ [Concomitant]
     Active Substance: MIRABEGRON
     Indication: Product used for unknown indication
     Dosage: 50 MG ORAL TABLET EXTENDED RELEASE 24 HOUR (MYRBETRIQ), TAKE 1 TABLET BY MOUTH IN THE MORNING.
     Route: 048
  12. VITAMINS NOS [Concomitant]
     Active Substance: VITAMINS
     Indication: Product used for unknown indication
     Dosage: 1 TABLET, DAILY
     Route: 048
  13. NITROGLYCERIN [Concomitant]
     Active Substance: NITROGLYCERIN
     Indication: Product used for unknown indication
     Route: 060
  14. PANCRELIPASE [Concomitant]
     Active Substance: PANCRELIPASE
     Indication: Product used for unknown indication
     Dosage: 24000-76000 UNITS CPEP DR CAPSULE, TAKE 2 CAPSULES BY MOUTH IN THE MORNING AND 2 CAPSULES AT NOON AN
     Route: 048
  15. ROPINIROLE [Concomitant]
     Active Substance: ROPINIROLE
     Indication: Product used for unknown indication
     Dosage: 0.25 MG TABLET, TAKE 1 TABLET BY MOUTH IN THE MORNING
     Route: 048
  16. RISPERIDONE [Concomitant]
     Active Substance: RISPERIDONE
     Indication: Product used for unknown indication
     Dosage: 20 MG, QD (IN THE MORNING)
  17. TYLENOL [Concomitant]
     Active Substance: ACETAMINOPHEN
     Indication: Product used for unknown indication
     Dosage: 500 MG, BID (AT BEDTIME)/EXTRA STRENGTH OR, 2 TAB AT BEDTIME
     Route: 048
  18. ZINC GLUCONATE [Concomitant]
     Active Substance: ZINC GLUCONATE
     Indication: Product used for unknown indication
     Dosage: 50 MG ORAL TABLET, TAKE 1 TABLET BY MOUTH IN THE MORNING
     Route: 048
  19. TORSEMIDE [Concomitant]
     Active Substance: TORSEMIDE
     Indication: Product used for unknown indication
     Dosage: 20 MG TABLET, TAKE 1 TABLET BY MOUTH IN THE MORNING
     Route: 048
  20. INCRUSE ELLIPTA [Concomitant]
     Active Substance: UMECLIDINIUM BROMIDE
     Indication: Product used for unknown indication

REACTIONS (7)
  - Death [Fatal]
  - Myasthenia gravis [Fatal]
  - Neurotoxicity [Unknown]
  - Aspartate aminotransferase increased [Recovering/Resolving]
  - Alanine aminotransferase increased [Recovering/Resolving]
  - Fatigue [Unknown]
  - Diarrhoea [Unknown]

NARRATIVE: CASE EVENT DATE: 20250502
